FAERS Safety Report 6302868-0 (Version None)
Quarter: 2009Q3

REPORT INFORMATION
  Report Type: 
  Country: None (occurrence: None)
  Receive Date: 20090810
  Receipt Date: 20090730
  Transmission Date: 20100115
  Serious: Yes (Hospitalization, Other)
  Sender: FDA-Public Use
  Company Number: US-ELI_LILLY_AND_COMPANY-US200907007220

PATIENT
  Sex: Female
  Weight: 44.444 kg

DRUGS (2)
  1. FORTEO [Suspect]
     Dates: start: 20090401
  2. FORTEO [Suspect]
     Dosage: UNK, UNK
     Dates: start: 20090401

REACTIONS (10)
  - CONFUSIONAL STATE [None]
  - CONTUSION [None]
  - FATIGUE [None]
  - INJECTION SITE ERYTHEMA [None]
  - INJECTION SITE HAEMATOMA [None]
  - LOSS OF CONSCIOUSNESS [None]
  - MALAISE [None]
  - NERVOUSNESS [None]
  - PYREXIA [None]
  - WHITE BLOOD CELL COUNT INCREASED [None]
